FAERS Safety Report 9724757 (Version 1)
Quarter: 2013Q4

REPORT INFORMATION
  Report Type: Report from Study
  Country: US (occurrence: US)
  Receive Date: 20131202
  Receipt Date: 20131202
  Transmission Date: 20140711
  Serious: Yes (Other)
  Sender: FDA-Public Use
  Company Number: US-PURDUE-USA-2013-0109009

PATIENT
  Age: 59 Year
  Sex: Female

DRUGS (2)
  1. OXY CR TAB [Suspect]
     Indication: PRODUCT USED FOR UNKNOWN INDICATION
     Dosage: 40 MG, Q12H
     Route: 048
  2. OXYCONTIN (NDA 22-272) [Suspect]
     Indication: PRODUCT USED FOR UNKNOWN INDICATION
     Dosage: UNK
     Route: 048
     Dates: start: 201002

REACTIONS (7)
  - Cerebrovascular accident [Not Recovered/Not Resolved]
  - Limb crushing injury [Recovering/Resolving]
  - Upper limb fracture [Recovering/Resolving]
  - Fall [Unknown]
  - Syncope [Unknown]
  - Vomiting [Unknown]
  - Dizziness [Unknown]
